FAERS Safety Report 15058557 (Version 5)
Quarter: 2019Q1

REPORT INFORMATION
  Report Type: Spontaneous
  Country: US (occurrence: US)
  Receive Date: 20180625
  Receipt Date: 20190329
  Transmission Date: 20190417
  Serious: Yes (Other)
  Sender: FDA-Public Use
  Company Number: US-PFIZER INC-2018254551

PATIENT
  Age: 52 Year
  Sex: Male

DRUGS (12)
  1. DILANTIN [Suspect]
     Active Substance: PHENYTOIN
     Dosage: UNK
     Route: 048
  2. SENNOSIDES. [Concomitant]
     Active Substance: SENNOSIDES
     Dosage: 6 DF, DAILY
  3. ATENOLOL. [Concomitant]
     Active Substance: ATENOLOL
     Dosage: 25 MG, UNK
     Route: 048
     Dates: start: 20120522
  4. VIGAMOX [Concomitant]
     Active Substance: MOXIFLOXACIN HYDROCHLORIDE
     Dosage: UNK
     Route: 047
     Dates: start: 20120606
  5. PRESERVISION [Concomitant]
     Active Substance: MINERALS\VITAMINS
     Dosage: UNK
  6. VITAMIN D [Concomitant]
     Active Substance: CHOLECALCIFEROL
     Dosage: 1 DF, 2X/DAY
     Route: 048
  7. NUCYNTA [Concomitant]
     Active Substance: TAPENTADOL HYDROCHLORIDE
     Dosage: 50 MG, 1X/DAY (EVENING)
     Route: 048
     Dates: start: 20120626
  8. FISH OIL [Concomitant]
     Active Substance: FISH OIL
     Dosage: 2 DF, 1X/DAY
  9. AVASTIN [Concomitant]
     Active Substance: BEVACIZUMAB
     Dosage: UNK, EVERY 5 WEEKS
  10. OXYCODONE-ACETAMINOPHEN [Concomitant]
     Active Substance: ACETAMINOPHEN\OXYCODONE HYDROCHLORIDE
     Dosage: 1 DF, 5 TO 325 MG, AT BED TIME
     Route: 048
  11. PSYLLIUM HUSK. [Concomitant]
     Active Substance: PSYLLIUM HUSK
     Dosage: UNK
  12. SIMVASTATIN. [Concomitant]
     Active Substance: SIMVASTATIN
     Dosage: 20 MG, UNK
     Route: 048
     Dates: start: 20120505

REACTIONS (6)
  - Polyneuropathy [Unknown]
  - Cerebellar atrophy [Not Recovered/Not Resolved]
  - Dysphagia [Unknown]
  - Syncope [Unknown]
  - Multiple system atrophy [Not Recovered/Not Resolved]
  - Fall [Unknown]

NARRATIVE: CASE EVENT DATE: 200505
